FAERS Safety Report 8848302 (Version 1)
Quarter: 2012Q4

REPORT INFORMATION
  Report Type: 
  Country: US (occurrence: US)
  Receive Date: 20121018
  Receipt Date: 20121018
  Transmission Date: 20130627
  Serious: Yes (Hospitalization, Disabling, Other)
  Sender: FDA-Public Use
  Company Number: US-PFIZER INC-2012258722

PATIENT
  Age: 63 Year
  Sex: Male
  Weight: 122 kg

DRUGS (10)
  1. LYRICA [Suspect]
     Indication: NEURALGIA
     Dosage: 75 mg, 2x/day
     Route: 048
  2. LOPRESSOR [Concomitant]
     Dosage: 100 mg, daily
  3. ZOCOR [Concomitant]
     Indication: BLOOD CHOLESTEROL ABNORMAL
     Dosage: 20 mg, daily
  4. DIGOXIN [Concomitant]
     Dosage: 0.25 mg, daily
  5. CARDIZEM [Concomitant]
     Dosage: 120 mg, daily
  6. LASIX [Concomitant]
     Dosage: 20 mg, daily
  7. POTASSIUM CHLORIDE [Concomitant]
     Dosage: 20 mEq, daily
  8. WARFARIN [Concomitant]
     Dosage: 4mg two times in a week, 6mg for the rest of days of the week
  9. VITAMIN B COMPLEX [Concomitant]
     Dosage: UNK
  10. VITAMIN D [Concomitant]
     Dosage: UNK

REACTIONS (8)
  - Cardiac failure congestive [Unknown]
  - Cerebrovascular accident [Unknown]
  - Heart rate irregular [Unknown]
  - Fluid retention [Unknown]
  - Diabetes mellitus [Unknown]
  - Vein disorder [Unknown]
  - Cardiovascular disorder [Unknown]
  - Oxygen saturation decreased [Unknown]
